FAERS Safety Report 6899866-5 (Version None)
Quarter: 2010Q3

REPORT INFORMATION
  Report Type: 
  Country: None (occurrence: None)
  Receive Date: 20100803
  Receipt Date: 20100721
  Transmission Date: 20110219
  Serious: Yes (Other)
  Sender: FDA-Public Use
  Company Number: US-ELI_LILLY_AND_COMPANY-US201007005559

PATIENT
  Sex: Female

DRUGS (8)
  1. EVISTA [Suspect]
     Indication: OSTEOPENIA
     Dosage: 60 MG, DAILY (1/D)
  2. BIOTIN [Concomitant]
  3. FISH OIL [Concomitant]
  4. OSTEO BI-FLEX [Concomitant]
  5. ASPIRIN [Concomitant]
  6. VITAMIN B-12 [Concomitant]
  7. CALTRATE + VITAMIN D [Concomitant]
  8. MULTI-VIT [Concomitant]

REACTIONS (1)
  - BREAST CANCER [None]
